FAERS Safety Report 25889860 (Version 1)
Quarter: 2025Q4

REPORT INFORMATION
  Report Type: Spontaneous
  Country: GB (occurrence: GB)
  Receive Date: 20251007
  Receipt Date: 20251007
  Transmission Date: 20260117
  Serious: Yes (Other)
  Sender: DAIICHI
  Company Number: None

PATIENT
  Age: 90 Year
  Sex: Female
  Weight: 72 kg

DRUGS (11)
  1. EDOXABAN [Suspect]
     Active Substance: EDOXABAN
     Indication: Ill-defined disorder
     Dosage: 60 MG
     Route: 048
     Dates: start: 20250717, end: 20250925
  2. POLYETHYLENE GLYCOL 3350\POTASSIUM CHLORIDE\SODIUM BICARBONATE\SODIUM [Concomitant]
     Active Substance: POLYETHYLENE GLYCOL 3350\POTASSIUM CHLORIDE\SODIUM BICARBONATE\SODIUM CHLORIDE
     Indication: Ill-defined disorder
     Dosage: UNK (TAKE THE CONTENTS OF ONE SACHET IN WATER ONCE)
     Route: 065
     Dates: start: 20240411
  3. EUMOVATE [Concomitant]
     Active Substance: CLOBETASONE BUTYRATE
     Indication: Ill-defined disorder
     Dosage: UNK (APPLY ONE OR TWO TIMES DAILY, MODERATE STEROID)
     Route: 061
     Dates: start: 20240522, end: 20250717
  4. TRELEGY ELLIPTA [Concomitant]
     Active Substance: FLUTICASONE FUROATE\UMECLIDINIUM BROMIDE\VILANTEROL TRIFENATATE
     Indication: Ill-defined disorder
     Dosage: UNK (INHALE ONE DOSE DAILY)
     Dates: start: 20240717
  5. OLMESARTAN MEDOXOMIL [Concomitant]
     Active Substance: OLMESARTAN MEDOXOMIL
     Indication: Ill-defined disorder
     Dosage: UNK (1 DAILY)
     Route: 065
     Dates: start: 20240814
  6. ACETAMINOPHEN [Concomitant]
     Active Substance: ACETAMINOPHEN
     Indication: Ill-defined disorder
     Dosage: UNK (ONE OR TWO CAPLETS TO BE TAKEN UP TO FOUR TIMES)
     Route: 065
     Dates: start: 20240814
  7. IBUPROFEN [Concomitant]
     Active Substance: IBUPROFEN
     Indication: Ill-defined disorder
     Dosage: UNK (APPLY THREE TIMES DAILY)
     Route: 061
     Dates: start: 20240911
  8. RIVAROXABAN [Concomitant]
     Active Substance: RIVAROXABAN
     Indication: Ill-defined disorder
     Dosage: 1 DOSAGE FORM, QD (TAKE ONE TABLET DAILY WITH A MEAL)
     Route: 065
     Dates: start: 20250306, end: 20250717
  9. FUROSEMIDE [Concomitant]
     Active Substance: FUROSEMIDE
     Indication: Ill-defined disorder
     Dosage: UNK (ONE TO TWO TO BE TAKEN EACH MORNING)
     Route: 065
     Dates: start: 20250430
  10. COCODAMOL [Concomitant]
     Active Substance: ACETAMINOPHEN\CODEINE PHOSPHATE
     Indication: Ill-defined disorder
     Dosage: UNK (ONE TO TWO TO BE TAKEN EVERY FOUR TO SIX HOURS)
     Route: 065
     Dates: start: 20250611
  11. APIXABAN [Concomitant]
     Active Substance: APIXABAN
     Indication: Ill-defined disorder
     Dosage: 1 DOSAGE FORM, BID (TAKE ONE TABLET TWICE A DAY)
     Route: 065
     Dates: start: 20250925

REACTIONS (2)
  - Nausea [Unknown]
  - Vomiting [Unknown]

NARRATIVE: CASE EVENT DATE: 20250925
